FAERS Safety Report 5705812-X (Version None)
Quarter: 2008Q2

REPORT INFORMATION
  Report Type: 
  Country: None (occurrence: None)
  Receive Date: 20080415
  Receipt Date: 20080404
  Transmission Date: 20081010
  Serious: Yes (Hospitalization)
  Sender: FDA-Public Use
  Company Number: GB-BAXTER-2008BH002775

PATIENT
  Age: 22 Year
  Sex: Female

DRUGS (6)
  1. SEVOFLURANE [Suspect]
     Indication: ANAESTHESIA
     Dosage: DOSE UNIT:UNKNOWN
     Route: 042
  2. PROPOFOL [Suspect]
     Indication: ANAESTHESIA
     Route: 042
  3. ONDASETRON [Suspect]
     Indication: ANAESTHESIA
     Route: 042
  4. DIAMORPHINE [Suspect]
     Indication: ANAESTHESIA
     Route: 065
  5. CHLORPHENIRAMINE MALEATE [Concomitant]
  6. SULFASALAZINE [Concomitant]

REACTIONS (3)
  - DYSTONIA [None]
  - PRURITUS [None]
  - RASH MACULAR [None]
